FAERS Safety Report 12695614 (Version 1)
Quarter: 2016Q3

REPORT INFORMATION
  Report Type: Spontaneous
  Country: US (occurrence: US)
  Receive Date: 20160829
  Receipt Date: 20160829
  Transmission Date: 20161109
  Serious: No
  Sender: FDA-Public Use
  Company Number: US-KALEO, INC-2016SA050610

PATIENT
  Sex: Female

DRUGS (4)
  1. STEROIDS [Suspect]
     Active Substance: UNSPECIFIED INGREDIENT
     Indication: PRODUCT USED FOR UNKNOWN INDICATION
     Dates: start: 2015
  2. AUVI-Q [Suspect]
     Active Substance: EPINEPHRINE
     Indication: HYPERSENSITIVITY
     Dosage: TWICE IM OR SC
     Dates: start: 20150704, end: 201510
  3. AUVI-Q [Suspect]
     Active Substance: EPINEPHRINE
     Dates: start: 20151014
  4. EPINEPHRINE. [Suspect]
     Active Substance: EPINEPHRINE
     Indication: HYPERSENSITIVITY
     Dates: start: 20151014

REACTIONS (3)
  - Oedema [Unknown]
  - Drug ineffective [None]
  - Fluid retention [Unknown]

NARRATIVE: CASE EVENT DATE: 2015
